FAERS Safety Report 4751799-6 (Version None)
Quarter: 2005Q3

REPORT INFORMATION
  Report Type: 
  Country: None (occurrence: None)
  Receive Date: 20050818
  Receipt Date: 20040910
  Transmission Date: 20060218
  Serious: Yes (Hospitalization)
  Sender: FDA-Public Use
  Company Number: 380099

PATIENT
  Age: 64 Year
  Sex: Female
  Weight: 65.8 kg

DRUGS (4)
  1. KYTRIL [Suspect]
     Dosage: 1 MG
     Dates: start: 20040719, end: 20040720
  2. NEULASTA [Suspect]
     Indication: CHEMOTHERAPY
     Dosage: 6 MG 1 PER DAY SUBCUTANEOUS
     Route: 058
     Dates: start: 20040719, end: 20040719
  3. DOXORUBICIN HCL [Concomitant]
  4. CYCLOPHOSPHAMIDE [Concomitant]

REACTIONS (3)
  - HYPERSENSITIVITY [None]
  - OROPHARYNGEAL SWELLING [None]
  - THROAT TIGHTNESS [None]
